FAERS Safety Report 17887093 (Version 1)
Quarter: 2020Q2

REPORT INFORMATION
  Report Type: Spontaneous
  Country: US (occurrence: US)
  Receive Date: 20200611
  Receipt Date: 20200611
  Transmission Date: 20200714
  Serious: No
  Sender: FDA-Public Use
  Company Number: US-BRACCO-2019US04171

PATIENT
  Age: 53 Year
  Sex: Female

DRUGS (4)
  1. MULTIHANCE [Suspect]
     Active Substance: GADOBENATE DIMEGLUMINE
     Indication: MAGNETIC RESONANCE IMAGING BREAST
     Dosage: 13 ML, SINGLE
     Dates: start: 20190809, end: 20190809
  2. SYNTHROID [Concomitant]
     Active Substance: LEVOTHYROXINE SODIUM
     Dosage: 50
  3. ALPRAZOLAM. [Concomitant]
     Active Substance: ALPRAZOLAM
     Dosage: 0.5 MG
  4. XANAX [Concomitant]
     Active Substance: ALPRAZOLAM
     Indication: CLAUSTROPHOBIA
     Dosage: UNK MG

REACTIONS (2)
  - Sensation of foreign body [Recovered/Resolved]
  - Nausea [Recovered/Resolved]

NARRATIVE: CASE EVENT DATE: 20190809
